FAERS Safety Report 12479085 (Version 1)
Quarter: 2016Q2

REPORT INFORMATION
  Report Type: Spontaneous
  Country: ES (occurrence: ES)
  Receive Date: 20160620
  Receipt Date: 20160620
  Transmission Date: 20160815
  Serious: Yes (Hospitalization, Other)
  Sender: FDA-Public Use
  Company Number: ES-ACCORD-041618

PATIENT
  Age: 84 Year
  Sex: Female

DRUGS (1)
  1. SERTRALINE [Suspect]
     Active Substance: SERTRALINE HYDROCHLORIDE
     Indication: ANTIDEPRESSANT THERAPY
     Dosage: INITIALLY RECEIVED AT THE DOSE 50 MG DAILY THEN DOSE INCREASED 100 MG.

REACTIONS (5)
  - Hallucination, visual [Recovering/Resolving]
  - Abnormal behaviour [Recovering/Resolving]
  - Delirium [Recovered/Resolved]
  - Altered state of consciousness [Recovering/Resolving]
  - Toxicity to various agents [Recovered/Resolved]
